APPROVED DRUG PRODUCT: ESZOPICLONE
Active Ingredient: ESZOPICLONE
Strength: 3MG
Dosage Form/Route: TABLET;ORAL
Application: A205504 | Product #003 | TE Code: AB
Applicant: HETERO LABS LTD UNIT V
Approved: Jan 4, 2024 | RLD: No | RS: No | Type: RX